FAERS Safety Report 10064958 (Version 2)
Quarter: 2019Q4

REPORT INFORMATION
  Report Type: Report from Study
  Country: US (occurrence: US)
  Receive Date: 20140408
  Receipt Date: 20191202
  Transmission Date: 20200122
  Serious: Yes (Other)
  Sender: FDA-Public Use
  Company Number: US-SA-2014SA039891

PATIENT
  Age: 71 Year
  Sex: Female

DRUGS (1)
  1. INSULIN GLARGINE [Suspect]
     Active Substance: INSULIN GLARGINE
     Indication: DIABETES MELLITUS
     Dosage: 100 AT NIGHT AND 40 IN MORNING, U, BID
     Dates: start: 2009

REACTIONS (10)
  - Peripheral vascular disorder [Not Recovered/Not Resolved]
  - Inappropriate schedule of product administration [Unknown]
  - Upper limb fracture [Unknown]
  - Stent placement [Unknown]
  - Osteopenia [Unknown]
  - Blood calcium decreased [Unknown]
  - Cardiac disorder [Not Recovered/Not Resolved]
  - Renal impairment [Not Recovered/Not Resolved]
  - Fall [Unknown]
  - Musculoskeletal pain [Unknown]

NARRATIVE: CASE EVENT DATE: 2009
